FAERS Safety Report 15377082 (Version 1)
Quarter: 2018Q3

REPORT INFORMATION
  Report Type: Spontaneous
  Country: US (occurrence: US)
  Receive Date: 20180913
  Receipt Date: 20180913
  Transmission Date: 20181010
  Serious: No
  Sender: FDA-Public Use
  Company Number: PHEH2018US037767

PATIENT
  Sex: Female

DRUGS (1)
  1. PROMACTA [Suspect]
     Active Substance: ELTROMBOPAG OLAMINE
     Indication: BREAST CANCER FEMALE
     Dosage: 1 DF, QD
     Route: 048
     Dates: start: 20180814

REACTIONS (2)
  - Alopecia [Not Recovered/Not Resolved]
  - Product use in unapproved indication [Unknown]
